FAERS Safety Report 4930691-8 (Version None)
Quarter: 2006Q1

REPORT INFORMATION
  Report Type: 
  Country: None (occurrence: None)
  Receive Date: 20060302
  Receipt Date: 20060105
  Transmission Date: 20060701
  Serious: Yes (Other)
  Sender: FDA-Public Use
  Company Number: GB-BRISTOL-MYERS SQUIBB COMPANY-13246657

PATIENT
  Age: 72 Year
  Sex: Male
  Weight: 69 kg

DRUGS (4)
  1. MESNA [Suspect]
     Indication: NON-HODGKIN'S LYMPHOMA
     Route: 040
     Dates: start: 20051208, end: 20051208
  2. CYCLOPHOSPHAMIDE [Suspect]
     Indication: NON-HODGKIN'S LYMPHOMA
     Route: 042
     Dates: start: 20051207, end: 20051207
  3. DOMPERIDONE [Concomitant]
  4. ALLOPURINOL [Concomitant]

REACTIONS (4)
  - ABDOMINAL PAIN [None]
  - DIARRHOEA [None]
  - SYNCOPE VASOVAGAL [None]
  - VOMITING [None]
